FAERS Safety Report 6923840-3 (Version None)
Quarter: 2010Q3

REPORT INFORMATION
  Report Type: 
  Country: None (occurrence: None)
  Receive Date: 20100813
  Receipt Date: 20090909
  Transmission Date: 20110219
  Serious: No
  Sender: FDA-Public Use
  Company Number: US-BRISTOL-MYERS SQUIBB COMPANY-14766554

PATIENT
  Age: 73 Year
  Sex: Male

DRUGS (6)
  1. REYATAZ [Suspect]
     Indication: HIV INFECTION
     Dosage: BOOSTED
     Route: 048
     Dates: start: 20050901
  2. TRUVADA [Suspect]
     Indication: HIV INFECTION
     Route: 048
     Dates: start: 20050901
  3. NORVIR [Suspect]
     Indication: HIV INFECTION
  4. CRANBERRY JUICE [Suspect]
  5. FISH OIL [Suspect]
  6. CHONDROITIN SULFATE + GLUCOSAMINE [Suspect]

REACTIONS (1)
  - BLOOD BILIRUBIN INCREASED [None]
